FAERS Safety Report 6525685-5 (Version None)
Quarter: 2009Q4

REPORT INFORMATION
  Report Type: 
  Country: None (occurrence: None)
  Receive Date: 20091214
  Receipt Date: 20090207
  Transmission Date: 20100525
  Serious: Yes (Other)
  Sender: FDA-Public Use
  Company Number: 613253

PATIENT
  Age: 56 Year
  Sex: Female

DRUGS (2)
  1. PEGASYS [Suspect]
     Indication: HEPATITIS C
     Dates: start: 20070101
  2. RIBAVIRIN [Suspect]
     Indication: HEPATITIS C
     Dates: start: 20070101

REACTIONS (2)
  - HEPATIC STEATOSIS [None]
  - MUSCULOSKELETAL PAIN [None]
